FAERS Safety Report 17348928 (Version 1)
Quarter: 2020Q1

REPORT INFORMATION
  Report Type: Report from Study
  Country: US (occurrence: US)
  Receive Date: 20200129
  Receipt Date: 20200129
  Transmission Date: 20200409
  Serious: No
  Sender: FDA-Public Use
  Company Number: US-EXELIXIS-CABO-19024858

PATIENT
  Age: 65 Year
  Sex: Male

DRUGS (2)
  1. CABOMETYX [Suspect]
     Active Substance: CABOZANTINIB S-MALATE
     Dosage: 60 MG,QD (AT BEDTIME, WITHOUT FOOD)
     Route: 048
  2. CABOMETYX [Suspect]
     Active Substance: CABOZANTINIB S-MALATE
     Indication: RENAL CELL CARCINOMA
     Dosage: 60 MG, QD (AT BEDTIME, WITHOUT FOOD)
     Route: 048
     Dates: start: 20191008

REACTIONS (8)
  - Erythema [Recovered/Resolved]
  - Gastric volvulus [Unknown]
  - Bronchitis [Not Recovered/Not Resolved]
  - Skin exfoliation [Recovered/Resolved]
  - Blister [Recovered/Resolved]
  - Burning sensation [Recovered/Resolved]
  - Musculoskeletal stiffness [Unknown]
  - Rash macular [Recovered/Resolved]

NARRATIVE: CASE EVENT DATE: 201910
